FAERS Safety Report 13202189 (Version 1)
Quarter: 2017Q1

REPORT INFORMATION
  Report Type: Other
  Country: GB (occurrence: GB)
  Receive Date: 20170209
  Receipt Date: 20170209
  Transmission Date: 20170428
  Serious: Yes (Other)
  Sender: FDA-Public Use
  Company Number: GB-LUPIN PHARMACEUTICALS INC.-E2B_00007291

PATIENT
  Age: 44 Year
  Sex: Female
  Weight: 63.5 kg

DRUGS (1)
  1. SERTRALINE [Suspect]
     Active Substance: SERTRALINE HYDROCHLORIDE
     Indication: ANXIETY
     Route: 048
     Dates: start: 20161220, end: 20170110

REACTIONS (3)
  - Anxiety [Recovered/Resolved]
  - Diarrhoea [Unknown]
  - Pollakiuria [Unknown]

NARRATIVE: CASE EVENT DATE: 20161220
